FAERS Safety Report 18489911 (Version 3)
Quarter: 2021Q3

REPORT INFORMATION
  Report Type: Spontaneous
  Country: CH (occurrence: CH)
  Receive Date: 20201111
  Receipt Date: 20210728
  Transmission Date: 20211014
  Serious: Yes (Other)
  Sender: FDA-Public Use
  Company Number: NVSC2020CH297931

PATIENT

DRUGS (2)
  1. BENDAMUSTINE [Suspect]
     Active Substance: BENDAMUSTINE
     Indication: MARGINAL ZONE LYMPHOMA
     Dosage: 90 MG/M2 (DAYS 1 AND 2, EVERY 4 WEEKS, FOR 6 CYCLES)
     Route: 042
  2. ARZERRA [Suspect]
     Active Substance: OFATUMUMAB
     Indication: MARGINAL ZONE LYMPHOMA
     Dosage: 1000 MG (ON DAY 1, EVERY 4 WEEKS, FOR 6 CYCLES)
     Route: 042

REACTIONS (2)
  - Pneumonia bacterial [Recovered/Resolved]
  - Product use in unapproved indication [Unknown]
